FAERS Safety Report 9800360 (Version 1)
Quarter: 2014Q1

REPORT INFORMATION
  Report Type: Spontaneous
  Country: GB (occurrence: GB)
  Receive Date: 20140106
  Receipt Date: 20140106
  Transmission Date: 20141002
  Serious: Yes (Disabling)
  Sender: FDA-Public Use
  Company Number: GB-DRREDDYS-GER/UKI/13/0036745

PATIENT
  Age: 69 Year
  Sex: Female

DRUGS (2)
  1. LETROZOLE [Suspect]
     Indication: BREAST CANCER
     Route: 048
     Dates: start: 20101116, end: 20131030
  2. TAMOXIFEN [Concomitant]
     Indication: PRODUCT USED FOR UNKNOWN INDICATION
     Route: 048
     Dates: start: 2008, end: 2010

REACTIONS (5)
  - Axonal neuropathy [Not Recovered/Not Resolved]
  - Balance disorder [Unknown]
  - Decreased vibratory sense [Unknown]
  - Loss of proprioception [Unknown]
  - Neuropathy peripheral [Not Recovered/Not Resolved]
